FAERS Safety Report 6555642-4 (Version None)
Quarter: 2010Q1

REPORT INFORMATION
  Report Type: 
  Country: None (occurrence: None)
  Receive Date: 20100128
  Receipt Date: 20100115
  Transmission Date: 20100710
  Serious: Yes (Other)
  Sender: FDA-Public Use
  Company Number: PHEH2008US11737

PATIENT
  Sex: Female
  Weight: 110 kg

DRUGS (9)
  1. RECLAST [Suspect]
     Indication: OSTEOPOROSIS
     Dosage: UNK
     Route: 042
     Dates: start: 20081201
  2. MYSOLINE [Concomitant]
     Dosage: 50 MG, BID
  3. SPIRIVA [Concomitant]
  4. DILANTIN [Concomitant]
     Dosage: 100 TID
  5. BROVANA [Concomitant]
  6. PULMICORT [Concomitant]
  7. SYNTHROID [Concomitant]
     Dosage: 150 UG, QD
  8. EXACIN [Concomitant]
     Dosage: 3 MG, QD
  9. FULTIE [Concomitant]
     Dosage: 1 MG, UNK

REACTIONS (3)
  - ASTHMA [None]
  - BACK PAIN [None]
  - CONSTIPATION [None]
